FAERS Safety Report 6781798-4 (Version None)
Quarter: 2010Q2

REPORT INFORMATION
  Report Type: 
  Country: None (occurrence: None)
  Receive Date: 20100621
  Receipt Date: 20100610
  Transmission Date: 20101027
  Serious: Yes (Death, Hospitalization)
  Sender: FDA-Public Use
  Company Number: FR-AMGEN-QUU418976

PATIENT
  Sex: Female

DRUGS (2)
  1. ENBREL [Suspect]
     Indication: RHEUMATOID ARTHRITIS
     Dosage: UNKNOWN
     Route: 058
     Dates: start: 20090101, end: 20100101
  2. APRANAX [Suspect]
     Indication: RHEUMATOID ARTHRITIS
     Dosage: UNKNOWN
     Route: 048
     Dates: start: 20090101

REACTIONS (17)
  - CARDIO-RESPIRATORY ARREST [None]
  - CELLULITIS STAPHYLOCOCCAL [None]
  - CHOLESTASIS [None]
  - DIARRHOEA [None]
  - DISEASE PROGRESSION [None]
  - FALL [None]
  - GASTRIC ULCER HAEMORRHAGE [None]
  - HAEMORRHAGIC ANAEMIA [None]
  - INTESTINAL OBSTRUCTION [None]
  - METABOLIC ACIDOSIS [None]
  - OEDEMA [None]
  - PHLEBITIS DEEP [None]
  - RESPIRATORY ACIDOSIS [None]
  - ROTATOR CUFF SYNDROME [None]
  - SKIN MACERATION [None]
  - STAPHYLOCOCCAL BACTERAEMIA [None]
  - VOMITING [None]
